FAERS Safety Report 24301997 (Version 6)
Quarter: 2024Q4

REPORT INFORMATION
  Report Type: Report from Study
  Country: NL (occurrence: NL)
  Receive Date: 20240910
  Receipt Date: 20241007
  Transmission Date: 20250115
  Serious: Yes (Hospitalization, Other)
  Sender: ABBVIE
  Company Number: NL-ABBVIE-5908978

PATIENT
  Age: 72 Year
  Sex: Male

DRUGS (10)
  1. CARBIDOPA\LEVODOPA [Suspect]
     Active Substance: CARBIDOPA\LEVODOPA
     Indication: Parkinson^s disease
     Dosage: MD: 11.0ML; CD: 2.5ML/H; ED: 1.0ML?REMAINS AT 16 HOURS
     Route: 050
     Dates: start: 20240710, end: 20240710
  2. CARBIDOPA\LEVODOPA [Suspect]
     Active Substance: CARBIDOPA\LEVODOPA
     Dosage: MD: 11.0ML; CD: 2.7ML/H; ED: 1.0ML?REMAINS AT 16 HOURS
     Route: 050
     Dates: start: 20240319, end: 20240710
  3. CARBIDOPA\LEVODOPA [Suspect]
     Active Substance: CARBIDOPA\LEVODOPA
     Dosage: MD: 11.0ML; CD: 2.5ML/H; ED: 1.0ML, REMAINS AT 16 HOURS
     Route: 050
     Dates: start: 20240919, end: 20241001
  4. CARBIDOPA\LEVODOPA [Suspect]
     Active Substance: CARBIDOPA\LEVODOPA
     Dosage: MD: 11.0ML; CD: 2.5ML/H; ED: 1.0ML?REMAINS AT 16 HOURS
     Route: 050
     Dates: start: 20240124, end: 20240319
  5. CARBIDOPA\LEVODOPA [Suspect]
     Active Substance: CARBIDOPA\LEVODOPA
     Dosage: MD: 11.0ML; CD: 2.5ML/H; ED: 1.0ML,?REMAINS AT 16 HOURS
     Route: 050
     Dates: start: 20240710, end: 20240919
  6. CARBIDOPA\LEVODOPA [Suspect]
     Active Substance: CARBIDOPA\LEVODOPA
     Dosage: MD: 11.0ML; CD: 2.5ML/H; ED: 1.0ML?DURATION TEXT: REMAINS AT 16 HOURS
     Route: 050
     Dates: start: 20241001
  7. CARBIDOPA\LEVODOPA [Suspect]
     Active Substance: CARBIDOPA\LEVODOPA
     Dosage: REMAINS AT 16 HOURS
     Route: 050
     Dates: start: 20231009
  8. CARBIDOPA\LEVODOPA [Suspect]
     Active Substance: CARBIDOPA\LEVODOPA
     Dosage: MD: 11.0ML; CD: 2.5ML/H; ED: 1.0ML?REMAINS AT 16 HOURS
     Route: 050
     Dates: start: 20240117, end: 20240124
  9. CARBIDOPA\LEVODOPA [Suspect]
     Active Substance: CARBIDOPA\LEVODOPA
     Route: 050
  10. LEVODOPA [Concomitant]
     Active Substance: LEVODOPA
     Indication: Product used for unknown indication

REACTIONS (25)
  - Hip fracture [Recovering/Resolving]
  - Fall [Recovered/Resolved]
  - Malaise [Not Recovered/Not Resolved]
  - Lower limb fracture [Unknown]
  - Delirium [Recovering/Resolving]
  - Hallucination [Not Recovered/Not Resolved]
  - Gait disturbance [Not Recovered/Not Resolved]
  - Cystitis noninfective [Recovering/Resolving]
  - Bradyphrenia [Not Recovered/Not Resolved]
  - Infusion site induration [Recovered/Resolved]
  - Loss of personal independence in daily activities [Not Recovered/Not Resolved]
  - Confusional state [Not Recovered/Not Resolved]
  - Anal incontinence [Not Recovered/Not Resolved]
  - Memory impairment [Not Recovered/Not Resolved]
  - Depressed mood [Not Recovered/Not Resolved]
  - Device dislocation [Recovered/Resolved]
  - Dry skin [Not Recovered/Not Resolved]
  - Nocturia [Not Recovered/Not Resolved]
  - On and off phenomenon [Not Recovered/Not Resolved]
  - Infusion site inflammation [Recovering/Resolving]
  - Tremor [Not Recovered/Not Resolved]
  - Device issue [Recovered/Resolved]
  - Muscle rigidity [Not Recovered/Not Resolved]
  - Bradykinesia [Not Recovered/Not Resolved]
  - Cushingoid [Not Recovered/Not Resolved]

NARRATIVE: CASE EVENT DATE: 20240101
